FAERS Safety Report 21255203 (Version 1)
Quarter: 2022Q3

REPORT INFORMATION
  Report Type: Report from Study
  Country: IT (occurrence: IT)
  Receive Date: 20220825
  Receipt Date: 20220825
  Transmission Date: 20221026
  Serious: Yes (Hospitalization, Other)
  Sender: FDA-Public Use
  Company Number: IT-JNJFOC-20220836303

PATIENT

DRUGS (3)
  1. CANAGLIFLOZIN [Suspect]
     Active Substance: CANAGLIFLOZIN
     Indication: Type 2 diabetes mellitus
     Route: 048
  2. EMPAGLIFLOZIN [Suspect]
     Active Substance: EMPAGLIFLOZIN
     Indication: Type 2 diabetes mellitus
     Route: 065
  3. DAPAGLIFLOZIN [Suspect]
     Active Substance: DAPAGLIFLOZIN
     Indication: Type 2 diabetes mellitus
     Route: 065

REACTIONS (16)
  - Myocardial infarction [Unknown]
  - Cerebrovascular accident [Unknown]
  - Cardiovascular disorder [Unknown]
  - Renal impairment [Unknown]
  - Genital infection [Unknown]
  - Gastrointestinal disorder [Unknown]
  - Dermatitis allergic [Unknown]
  - Myalgia [Unknown]
  - Arthralgia [Unknown]
  - Infection [Unknown]
  - Weight decreased [Unknown]
  - Asthenia [Unknown]
  - Peripheral arterial occlusive disease [Unknown]
  - Haemoconcentration [Unknown]
  - Hypoglycaemia [Unknown]
  - Urinary tract infection [Unknown]
